FAERS Safety Report 11961813 (Version 4)
Quarter: 2016Q1

REPORT INFORMATION
  Report Type: Spontaneous
  Country: US (occurrence: US)
  Receive Date: 20160126
  Receipt Date: 20160128
  Transmission Date: 20160526
  Serious: No
  Sender: FDA-Public Use
  Company Number: US-009507513-1601USA009383

PATIENT
  Age: 37 Year
  Sex: Male

DRUGS (2)
  1. CUBICIN [Suspect]
     Active Substance: DAPTOMYCIN
  2. INVANZ [Suspect]
     Active Substance: ERTAPENEM SODIUM
     Indication: SKIN ULCER
     Dosage: 1 G, QD
     Route: 042
     Dates: start: 20160120

REACTIONS (1)
  - Oropharyngeal pain [Unknown]

NARRATIVE: CASE EVENT DATE: 201601
